FAERS Safety Report 26139661 (Version 1)
Quarter: 2025Q4

REPORT INFORMATION
  Report Type: Spontaneous
  Country: EU (occurrence: EU)
  Receive Date: 20251210
  Receipt Date: 20251210
  Transmission Date: 20260118
  Serious: Yes (Death)
  Sender: CHEPLAPHARM
  Company Number: None

PATIENT
  Age: 23 Year
  Sex: Male

DRUGS (6)
  1. QUETIAPINE [Suspect]
     Active Substance: QUETIAPINE
     Dosage: UNKNOWN
     Route: 048
     Dates: end: 202303
  2. DAFALGAN [Suspect]
     Active Substance: ACETAMINOPHEN
     Dosage: UNKNOWN
     Route: 048
     Dates: end: 202303
  3. ACAMPROSATE [Suspect]
     Active Substance: ACAMPROSATE
  4. DIAZEPAM [Suspect]
     Active Substance: DIAZEPAM
  5. ZOPICLONE [Suspect]
     Active Substance: ZOPICLONE
  6. ALCOHOL [Suspect]
     Active Substance: ALCOHOL

REACTIONS (4)
  - Poisoning deliberate [Fatal]
  - Asphyxia [Fatal]
  - Cardiac failure acute [Fatal]
  - Toxicity to various agents [Fatal]
